FAERS Safety Report 9432546 (Version 3)
Quarter: 2013Q4

REPORT INFORMATION
  Report Type: Spontaneous
  Country: FR (occurrence: FR)
  Receive Date: 20130731
  Receipt Date: 20131011
  Transmission Date: 20140711
  Serious: Yes (Hospitalization)
  Sender: FDA-Public Use
  Company Number: PHHY2013FR080067

PATIENT
  Age: 65 Year
  Sex: Female

DRUGS (13)
  1. EUCREAS [Suspect]
     Indication: DIABETES MELLITUS
     Dosage: UNK UKN, BID
     Route: 048
     Dates: end: 201304
  2. VOLTARENE LP [Suspect]
     Indication: NECK PAIN
     Dosage: 100 MG
     Route: 048
     Dates: start: 20130305, end: 20130312
  3. VOLTARENE EMULGEL [Suspect]
     Indication: NECK PAIN
     Dates: start: 20130305, end: 20130312
  4. DIAMICRON [Suspect]
     Indication: DIABETES MELLITUS
     Dosage: 60 MG, BID
     Route: 048
     Dates: end: 201304
  5. COAPROVEL [Suspect]
     Indication: HYPERTENSION
     Dosage: 1 DF (300 MG IRBE AND 12.5 MG HYDROCHLORO), QD
     Route: 048
  6. AMLOR [Suspect]
     Indication: HYPERTENSION
     Dosage: 10 MG, QD
     Route: 048
  7. TAHOR [Suspect]
     Indication: HYPERCHOLESTEROLAEMIA
     Dosage: 20 MG, QD
     Route: 048
     Dates: end: 201304
  8. LEVOTHYROX [Suspect]
     Indication: HYPOTHYROIDISM
     Dosage: 125 UG, QD
     Route: 048
  9. LEVOTHYROX [Suspect]
     Dosage: 100 UG, QD
     Route: 048
  10. SEROPLEX [Suspect]
     Dosage: 10 MG, QD
     Route: 048
     Dates: start: 201212, end: 201304
  11. IXPRIM [Suspect]
     Indication: NECK PAIN
     Dosage: 10 MG, QD
     Route: 048
     Dates: start: 20130314, end: 2013
  12. DOLIPRANE [Suspect]
     Dosage: UNK UKN, UNK
     Route: 048
     Dates: start: 20130312, end: 2013
  13. LAMALINE [Suspect]
     Indication: NECK PAIN
     Dosage: UNK UKN, UNK
     Dates: start: 20130312, end: 2013

REACTIONS (3)
  - Hepatitis cholestatic [Recovered/Resolved]
  - Jaundice [Recovered/Resolved]
  - Pruritus [Recovered/Resolved]
